FAERS Safety Report 6290802-1 (Version None)
Quarter: 2009Q3

REPORT INFORMATION
  Report Type: 
  Country: None (occurrence: None)
  Receive Date: 20090729
  Receipt Date: 20090729
  Transmission Date: 20100115
  Serious: Yes (Life-Threatening, Hospitalization)
  Sender: FDA-Public Use
  Company Number: None

PATIENT
  Sex: Female

DRUGS (1)
  1. CIPRO [Suspect]
     Indication: DIVERTICULITIS
     Dosage: 1 DOSE
     Dates: start: 20030601, end: 20030601

REACTIONS (5)
  - DYSPNOEA [None]
  - PALPITATIONS [None]
  - THROAT TIGHTNESS [None]
  - TUNNEL VISION [None]
  - VISION BLURRED [None]
